FAERS Safety Report 8688375 (Version 3)
Quarter: 2013Q4

REPORT INFORMATION
  Report Type: Spontaneous
  Country: US (occurrence: US)
  Receive Date: 20120727
  Receipt Date: 20131101
  Transmission Date: 20140711
  Serious: No
  Sender: FDA-Public Use
  Company Number: US-009507513-2012SP036537

PATIENT
  Age: 51 Year
  Sex: Male
  Weight: 126.98 kg

DRUGS (2)
  1. CLARITIN-D-24 [Suspect]
     Indication: HYPERSENSITIVITY
     Dosage: 10 MG, QAM
     Route: 048
     Dates: start: 20120601
  2. CLARITIN-D-24 [Suspect]
     Dosage: 10 MG, ONCE
     Route: 048
     Dates: start: 20120617

REACTIONS (1)
  - Overdose [Recovered/Resolved]
